FAERS Safety Report 12629327 (Version 1)
Quarter: 2016Q3

REPORT INFORMATION
  Report Type: Spontaneous
  Country: JP (occurrence: JP)
  Receive Date: 20160808
  Receipt Date: 20160808
  Transmission Date: 20161109
  Serious: Yes (Other)
  Sender: FDA-Public Use
  Company Number: JP-BAYER-2016-147803

PATIENT
  Age: 76 Year
  Sex: Female

DRUGS (2)
  1. BAYASPIRIN [Suspect]
     Active Substance: ASPIRIN
     Dosage: UNK
     Route: 048
  2. WARFARIN [Interacting]
     Active Substance: WARFARIN
     Dosage: UNK
     Route: 048

REACTIONS (7)
  - Labelled drug-drug interaction medication error [None]
  - Drug administration error [None]
  - Gastrointestinal amyloidosis [None]
  - Haemorrhagic anaemia [None]
  - Gastrointestinal erosion [None]
  - Potentiating drug interaction [None]
  - Gastrointestinal ulcer haemorrhage [None]
